FAERS Safety Report 8551482 (Version 3)
Quarter: 2012Q4

REPORT INFORMATION
  Report Type: 
  Country: US (occurrence: US)
  Receive Date: 20120508
  Receipt Date: 20121012
  Transmission Date: 20130627
  Serious: Yes (Hospitalization)
  Sender: FDA-Public Use
  Company Number: US-US-EMD SERONO, INC.-7129792

PATIENT
  Age: 69 Year
  Sex: Female
  Weight: 93 kg

DRUGS (11)
  1. REBIF [Suspect]
     Indication: MULTIPLE SCLEROSIS
     Route: 058
     Dates: start: 20110429, end: 20120427
  2. ATENOLOL [Concomitant]
     Indication: PRODUCT USED FOR UNKNOWN INDICATION
     Dosage: for 90 days
     Route: 048
     Dates: start: 20120515
  3. CALCIUM + D3 [Concomitant]
     Indication: PRODUCT USED FOR UNKNOWN INDICATION
     Dosage: for 90 days
     Route: 048
     Dates: start: 20120515
  4. DETROL LA XR [Concomitant]
     Indication: PRODUCT USED FOR UNKNOWN INDICATION
     Dosage: 24-hour extended release
     Route: 048
  5. IRON [Concomitant]
     Indication: PRODUCT USED FOR UNKNOWN INDICATION
     Dosage: for 90 days
     Route: 048
     Dates: start: 20120515
  6. MIRLALAX [Concomitant]
     Indication: PRODUCT USED FOR UNKNOWN INDICATION
     Dosage: as needed for 90 days
     Route: 048
     Dates: start: 20120515
  7. NAPROXEN [Concomitant]
     Indication: PRODUCT USED FOR UNKNOWN INDICATION
     Dosage: as needed for 90 days
     Route: 048
  8. NEURONTIN [Concomitant]
     Indication: PRODUCT USED FOR UNKNOWN INDICATION
     Dosage: in the morning, at noon, and 3 at bedtime
     Route: 048
     Dates: start: 20120126
  9. SKELAXIN [Concomitant]
     Indication: PRODUCT USED FOR UNKNOWN INDICATION
     Dosage: as needed for 90 days
     Route: 048
     Dates: start: 20120515
  10. VITAMIN D2 [Concomitant]
     Indication: PRODUCT USED FOR UNKNOWN INDICATION
     Route: 048
     Dates: start: 20120515
  11. ZANTAC [Concomitant]
     Indication: PRODUCT USED FOR UNKNOWN INDICATION
     Dosage: as needed for 90 days
     Route: 048
     Dates: start: 20120515

REACTIONS (2)
  - Idiopathic thrombocytopenic purpura [Recovered/Resolved]
  - Feeling cold [Unknown]
